FAERS Safety Report 5280445-0 (Version None)
Quarter: 2007Q1

REPORT INFORMATION
  Report Type: 
  Country: None (occurrence: None)
  Receive Date: 20070329
  Receipt Date: 20070322
  Transmission Date: 20070707
  Serious: Yes (Death)
  Sender: FDA-Public Use
  Company Number: FR-AVENTIS-200711034FR

PATIENT
  Age: 84 Year
  Sex: Female

DRUGS (2)
  1. LOVENOX [Suspect]
     Indication: ATRIAL FIBRILLATION
     Route: 058
     Dates: start: 20070215
  2. PREVISCAN                          /00789001/ [Suspect]
     Route: 048
     Dates: start: 20070219

REACTIONS (2)
  - COMA [None]
  - DRUG INTERACTION [None]
